FAERS Safety Report 13570385 (Version 1)
Quarter: 2017Q2

REPORT INFORMATION
  Report Type: Spontaneous
  Country: US (occurrence: US)
  Receive Date: 20170522
  Receipt Date: 20170522
  Transmission Date: 20170830
  Serious: No
  Sender: FDA-Public Use
  Company Number: US-ALLERMED LABORATORIES, INC.-2021070

PATIENT
  Age: 49 Year
  Sex: Female
  Weight: 79.09 kg

DRUGS (96)
  1. LAKE TROUT [Suspect]
     Active Substance: TROUT, UNSPECIFIED
     Route: 023
  2. FOOD - FISH AND SHELLFISH, SHRIMP, WHITE\BROWN\PINK, LITOPAENAEUS SETI [Suspect]
     Active Substance: NORTHERN BROWN SHRIMP\NORTHERN PINK SHRIMP\NORTHERN WHITE SHRIMP
     Route: 023
  3. FOOD - FISH AND SHELLFISH, CRAB, CALLINECTES SPP. [Suspect]
     Active Substance: BLUE CRAB
     Route: 023
  4. MOLDS, RUSTS AND SMUTS, GS PENICILLIUM MIX [Suspect]
     Active Substance: PENICILLIUM CAMEMBERTI\PENICILLIUM CHRYSOGENUM VAR. CHRYSOGENUM\PENICILLIUM DIGITATUM\PENICILLIUM ROQUEFORTI
     Route: 023
  5. POLLENS - GRASSES, JOHNSON GRASS SORGHUM HALEPENSE [Suspect]
     Active Substance: SORGHUM HALEPENSE POLLEN
     Route: 023
  6. POLLENS - WEEDS AND GARDEN PLANTS, PIGWEED, ROUGH REDROOT AMARANTHUS RETROFLEXUS [Suspect]
     Active Substance: AMARANTHUS RETROFLEXUS POLLEN
     Route: 023
  7. POLLENS - TREES, BEECH, AMERICAN FAGUS GRANDIFOLIA [Suspect]
     Active Substance: FAGUS GRANDIFOLIA POLLEN
     Route: 023
  8. POLLENS - TREES, SYCAMORE, AMERICAN (EASTERN) PLATANUS OCCIDENTALLIS [Suspect]
     Active Substance: PLATANUS OCCIDENTALIS POLLEN
     Route: 023
  9. ZADITOR [Suspect]
     Active Substance: KETOTIFEN FUMARATE
     Route: 047
  10. PREDNISONE. [Concomitant]
     Active Substance: PREDNISONE
     Route: 048
  11. STANDARDIZED BERMUDA GRASS [Suspect]
     Active Substance: CYNODON DACTYLON POLLEN
     Route: 023
  12. FOOD - PLANT SOURCE, BEAN, LIMA, PHASEOLUS LIMENSIS [Suspect]
     Active Substance: LIMA BEAN
     Route: 023
  13. FOOD - PLANT SOURCE, WALNUT, ENGLISH, JUGLANS REGIA [Suspect]
     Active Substance: ENGLISH WALNUT
     Route: 023
  14. MOLDS, RUSTS AND SMUTS, GS PENICILLIUM MIX [Suspect]
     Active Substance: PENICILLIUM CAMEMBERTI\PENICILLIUM CHRYSOGENUM VAR. CHRYSOGENUM\PENICILLIUM DIGITATUM\PENICILLIUM ROQUEFORTI
     Route: 023
  15. MOLDS, RUSTS AND SMUTS, FUSARIUM MONILIFORME [Suspect]
     Active Substance: GIBBERELLA FUJIKUROI
     Route: 023
  16. STANDARDIZED PERENNIAL RYE GRASS [Suspect]
     Active Substance: LOLIUM PERENNE POLLEN
     Route: 023
  17. EASTERN WHITE PINE POLLEN [Suspect]
     Active Substance: PINUS STROBUS POLLEN
     Route: 023
  18. POLLENS - TREES, COTTONWOOD, EASTERN, POPULUS DELTOIDES [Suspect]
     Active Substance: POPULUS DELTOIDES POLLEN
     Route: 023
  19. POLLENS - TREES, GS EASTERN OAK MIX [Suspect]
     Active Substance: QUERCUS ALBA POLLEN\QUERCUS RUBRA POLLEN\QUERCUS VELUTINA POLLEN
     Route: 023
  20. POLLENS - TREES, PECAN CARYA CARYA ILLINOENSIS [Suspect]
     Active Substance: CARYA ILLINOINENSIS POLLEN
     Route: 023
  21. ALBUTEROL SULFATE. [Concomitant]
     Active Substance: ALBUTEROL SULFATE
     Route: 048
  22. ZOMIG [Concomitant]
     Active Substance: ZOLMITRIPTAN
     Route: 045
  23. FOOD - ANIMAL PRODUCTS AND POULTRY PRODUCTS, EGG, WHOLE, GALLUS GALLUS [Suspect]
     Active Substance: EGG
     Route: 023
  24. FOOD - PLANT SOURCE, WHEAT, WHOLE, TRITICUM AESTIVUM [Suspect]
     Active Substance: WHEAT
     Route: 023
  25. INSECTS (WHOLE BODY) COCKROACH MIX [Suspect]
     Active Substance: BLATELLA GERMANICA\PERIPLANETA AMERICANA
     Route: 023
  26. MOLDS, RUSTS AND SMUTS, GS PENICILLIUM MIX [Suspect]
     Active Substance: PENICILLIUM CAMEMBERTI\PENICILLIUM CHRYSOGENUM VAR. CHRYSOGENUM\PENICILLIUM DIGITATUM\PENICILLIUM ROQUEFORTI
     Route: 023
  27. MOLDS, RUSTS AND SMUTS, FUSARIUM MONILIFORME [Suspect]
     Active Substance: GIBBERELLA FUJIKUROI
     Route: 023
  28. MOLDS, RUSTS AND SMUTS, AUREOBASIDIUM PULLULANS [Suspect]
     Active Substance: AUREOBASIDIUM PULLULANS VAR. PULLUTANS
     Route: 023
  29. POLLENS - GRASSES, JOHNSON GRASS SORGHUM HALEPENSE [Suspect]
     Active Substance: SORGHUM HALEPENSE POLLEN
     Route: 023
  30. POLLENS - WEEDS AND GARDEN PLANTS, PIGWEED, ROUGH REDROOT AMARANTHUS RETROFLEXUS [Suspect]
     Active Substance: AMARANTHUS RETROFLEXUS POLLEN
     Route: 023
  31. RED MULBERRY POLLEN [Suspect]
     Active Substance: MORUS RUBRA POLLEN
     Route: 023
  32. POLLENS - TREES, GS EASTERN OAK MIX [Suspect]
     Active Substance: QUERCUS ALBA POLLEN\QUERCUS RUBRA POLLEN\QUERCUS VELUTINA POLLEN
     Route: 023
  33. POLLENS - TREES, WALNUT, BLACK JUGLANS NIGRA [Suspect]
     Active Substance: JUGLANS NIGRA POLLEN
     Route: 023
  34. CETIRIZINE HCL [Concomitant]
     Active Substance: CETIRIZINE HYDROCHLORIDE
     Route: 048
  35. LAKE TROUT [Suspect]
     Active Substance: TROUT, UNSPECIFIED
     Route: 023
  36. FOOD - FISH AND SHELLFISH, CRAB, CALLINECTES SPP. [Suspect]
     Active Substance: BLUE CRAB
     Route: 023
  37. ANIMAL ALLERGENS, MOUSE EPITHELIA, MUS MUSCULUS [Suspect]
     Active Substance: MUS MUSCULUS SKIN
     Route: 023
  38. STANDARDIZED CAT HAIR [Suspect]
     Active Substance: FELIS CATUS HAIR
     Route: 023
  39. MOLDS, RUSTS AND SMUTS, ASPERGILLUS NIGER [Suspect]
     Active Substance: ASPERGILLUS NIGER VAR. NIGER
     Route: 023
  40. MOLDS, RUSTS AND SMUTS, AUREOBASIDIUM PULLULANS [Suspect]
     Active Substance: AUREOBASIDIUM PULLULANS VAR. PULLUTANS
     Route: 023
  41. MOLDS, RUSTS AND SMUTS, EPICOCCUM NIGRUM [Suspect]
     Active Substance: EPICOCCUM NIGRUM
     Route: 023
  42. STANDARDIZED KENTUCKY (JUNE) BLUEGRASS [Suspect]
     Active Substance: POA PRATENSIS POLLEN
     Route: 023
  43. EASTERN WHITE PINE POLLEN [Suspect]
     Active Substance: PINUS STROBUS POLLEN
     Route: 023
  44. RED MULBERRY POLLEN [Suspect]
     Active Substance: MORUS RUBRA POLLEN
     Route: 023
  45. POLLENS - TREES, BEECH, AMERICAN FAGUS GRANDIFOLIA [Suspect]
     Active Substance: FAGUS GRANDIFOLIA POLLEN
     Route: 023
  46. POLLENS - TREES, GS EASTERN OAK MIX [Suspect]
     Active Substance: QUERCUS ALBA POLLEN\QUERCUS RUBRA POLLEN\QUERCUS VELUTINA POLLEN
     Route: 023
  47. ASH MIXTURE [Suspect]
     Active Substance: FRAXINUS AMERICANA POLLEN\FRAXINUS PENNSYLVANICA POLLEN
     Route: 023
  48. POLLENS - TREES, GS BIRCH MIX [Suspect]
     Active Substance: BETULA LENTA POLLEN\BETULA NIGRA POLLEN\BETULA POPULIFOLIA POLLEN
     Route: 023
  49. POLLENS - TREES, GS EASTERN 10 TREE MIX [Suspect]
     Active Substance: ACER SACCHARUM POLLEN\BETULA NIGRA POLLEN\CARYA OVATA POLLEN\FAGUS GRANDIFOLIA POLLEN\FRAXINUS AMERICANA POLLEN\LIQUIDAMBAR STYRACIFLUA POLLEN\PLATANUS OCCIDENTALIS POLLEN\POPULUS DELTOIDES SUBSP. DELTOIDES POLLEN\QUERCUS RUBRA POLLEN\ULMUS AMERICANA POLLEN
     Route: 023
  50. BENADRYL [Concomitant]
     Active Substance: DIPHENHYDRAMINE HYDROCHLORIDE
     Route: 048
  51. FOOD - PLANT SOURCE, PECAN CARYA ILLINOENSIS [Suspect]
     Active Substance: PECAN
     Route: 023
  52. FOOD - PLANT SOURCE, PEA, GREEN OR ENGLISH PISUM SATIVUM [Suspect]
     Active Substance: PEA
     Route: 023
  53. FOOD - PLANT SOURCE, TOMATO, SOLANUM LYCOPERSICUM VAR. LYCOPERSICUM [Suspect]
     Active Substance: ALLERGENIC EXTRACT- TOMATO
     Route: 023
  54. MOLDS, RUSTS AND SMUTS, NEUROSPORA INTERMEDIA [Suspect]
     Active Substance: NEUROSPORA INTERMEDIA
     Route: 023
  55. PLANTS AND PLANT PARTS, ORRIS ROOT, IRIS GERMANICA VAR. FLORENTINA [Suspect]
     Active Substance: IRIS GERMANICA VAR. FLORENTINA ROOT
     Route: 023
  56. MOLDS, RUSTS AND SMUTS, CLADOSPORIUM HERBARUM [Suspect]
     Active Substance: CLADOSPORIUM HERBARUM
     Route: 023
  57. MOLDS, RUSTS AND SMUTS, CLADOSPORIUM HERBARUM [Suspect]
     Active Substance: CLADOSPORIUM HERBARUM
     Route: 023
  58. MOLDS, RUSTS AND SMUTS, GS ASPERGILLUS MIX [Suspect]
     Active Substance: ASPERGILLUS FLAVUS\ASPERGILLUS FUMIGATUS\ASPERGILLUS NIGER VAR. NIGER\ASPERGILLUS NIDULANS\EUROTIUM AMSTELODAMI
     Route: 023
  59. MOLDS, RUSTS AND SMUTS, RHIZOPUS STOLONIFER [Suspect]
     Active Substance: RHIZOPUS STOLONIFER
     Route: 023
  60. STANDARDIZED ORCHARD GRASS [Suspect]
     Active Substance: DACTYLIS GLOMERATA POLLEN
     Route: 023
  61. STANDARDIZED MEADOW FESCUE GRASS POLLEN [Suspect]
     Active Substance: FESTUCA PRATENSIS POLLEN
     Route: 023
  62. STANDARDIZED GRASS POLLEN, REDTOP [Suspect]
     Active Substance: AGROSTIS GIGANTEA POLLEN
     Route: 023
  63. STANDARDIZED SWEET VERNAL GRASS [Suspect]
     Active Substance: ANTHOXANTHUM ODORATUM POLLEN
     Route: 023
  64. POLLENS - WEEDS AND GARDEN PLANTS, PLANTAIN, ENGLISH PLANTAGO LANCEOLATA [Suspect]
     Active Substance: PLANTAGO LANCEOLATA POLLEN
     Route: 023
  65. POLLENS - TREES, GS EASTERN OAK MIX [Suspect]
     Active Substance: QUERCUS ALBA POLLEN\QUERCUS RUBRA POLLEN\QUERCUS VELUTINA POLLEN
     Route: 023
  66. POLLENS - TREES, ALDER, WHITE, ALNUS RHOMBIFOLIA [Suspect]
     Active Substance: ALNUS RHOMBIFOLIA POLLEN
     Route: 023
  67. FOOD - PLANT SOURCE, SQUASH, SUMMER, CUCURBITA PEPO VAR . [Suspect]
     Active Substance: SUMMER SQUASH
     Route: 023
  68. ANIMAL ALLERGENS, MOUSE EPITHELIA, MUS MUSCULUS [Suspect]
     Active Substance: MUS MUSCULUS SKIN
     Route: 023
  69. FOOD - PLANT SOURCE, CACAO BEAN, THEOBROMA CACAO [Suspect]
     Active Substance: COCOA
     Route: 023
  70. ANIMAL ALLERGENS, DOG EPITHELIA, CANIS FAMILIARIS [Suspect]
     Active Substance: CANIS LUPUS FAMILIARIS SKIN
     Route: 023
  71. MOLDS, RUSTS AND SMUTS, EPICOCCUM NIGRUM [Suspect]
     Active Substance: EPICOCCUM NIGRUM
     Route: 023
  72. MOLDS, RUSTS AND SMUTS, PHOMA BETAE [Suspect]
     Active Substance: PLEOSPORA BETAE
     Route: 023
  73. POSITIVE SKIN TEST CONTROL - HISTAMINE [Suspect]
     Active Substance: HISTAMINE
     Route: 023
  74. POLLENS - TREES, GS MAPLE MIX [Suspect]
     Active Substance: ACER RUBRUM POLLEN\ACER SACCHARINUM POLLEN\ACER SACCHARUM POLLEN
     Route: 023
  75. POLLENS - TREES, PECAN CARYA CARYA ILLINOENSIS [Suspect]
     Active Substance: CARYA ILLINOINENSIS POLLEN
     Route: 023
  76. FOOD - PLANT SOURCE, GARLIC, ALLIUM SATIVUM [Suspect]
     Active Substance: GARLIC
     Route: 023
  77. FOOD - PLANT SOURCE, ONION, ALLIUM SPP. [Suspect]
     Active Substance: ONION
     Route: 023
  78. FOOD - FISH AND SHELLFISH, FLOUNDER, PLATICHTHYS SP. [Suspect]
     Active Substance: FLOUNDER, UNSPECIFIED
     Route: 023
  79. MOLDS, RUSTS AND SMUTS, NEUROSPORA INTERMEDIA [Suspect]
     Active Substance: NEUROSPORA INTERMEDIA
     Route: 023
  80. ANIMAL ALLERGENS, GS MIXED FEATHERS [Suspect]
     Active Substance: ANAS PLATYRHYNCHOS FEATHER\ANSER ANSER FEATHER\GALLUS GALLUS FEATHER
     Route: 023
  81. MOLDS, RUSTS AND SMUTS, EPICOCCUM NIGRUM [Suspect]
     Active Substance: EPICOCCUM NIGRUM
     Route: 023
  82. POLLENS - TREES, BEECH, AMERICAN FAGUS GRANDIFOLIA [Suspect]
     Active Substance: FAGUS GRANDIFOLIA POLLEN
     Route: 023
  83. POLLENS - TREES, CEDAR, RED JUNIPERUS VIRGINIANA [Suspect]
     Active Substance: JUNIPERUS VIRGINIANA POLLEN
     Route: 023
  84. FOOD - ANIMAL PRODUCTS AND POULTRY PRODUCTS, EGG, WHITE, GALLUS GALLUS [Suspect]
     Active Substance: EGG WHITE
     Route: 023
  85. FOOD - PLANT SOURCE, BEAN, LIMA, PHASEOLUS LIMENSIS [Suspect]
     Active Substance: LIMA BEAN
     Route: 023
  86. FOOD - PLANT SOURCE, BEAN, LIMA, PHASEOLUS LIMENSIS [Suspect]
     Active Substance: LIMA BEAN
     Route: 023
  87. ANIMAL ALLERGENS, HAMSTER EPITHELIA, MESOCRICETUS AURATUS [Suspect]
     Active Substance: MESOCRICETUS AURATUS SKIN
     Route: 023
  88. MOLDS, RUSTS AND SMUTS, NEUROSPORA INTERMEDIA [Suspect]
     Active Substance: NEUROSPORA INTERMEDIA
     Route: 023
  89. MOLDS, RUSTS AND SMUTS, AUREOBASIDIUM PULLULANS [Suspect]
     Active Substance: AUREOBASIDIUM PULLULANS VAR. PULLUTANS
     Route: 023
  90. MOLDS, RUSTS AND SMUTS, RHIZOPUS STOLONIFER [Suspect]
     Active Substance: RHIZOPUS STOLONIFER
     Route: 023
  91. POLLENS - WEEDS AND GARDEN PLANTS, PIGWEED, ROUGH REDROOT AMARANTHUS RETROFLEXUS [Suspect]
     Active Substance: AMARANTHUS RETROFLEXUS POLLEN
     Route: 023
  92. POLLENS - WEEDS AND GARDEN PLANTS, PLANTAIN, ENGLISH PLANTAGO LANCEOLATA [Suspect]
     Active Substance: PLANTAGO LANCEOLATA POLLEN
     Route: 023
  93. COCA-GLYCERINE CONTROL [Suspect]
     Active Substance: GLYCERIN
     Route: 023
  94. EASTERN WHITE PINE POLLEN [Suspect]
     Active Substance: PINUS STROBUS POLLEN
     Route: 023
  95. EASTERN WHITE PINE POLLEN [Suspect]
     Active Substance: PINUS STROBUS POLLEN
     Route: 023
  96. POLLENS - TREES, CEDAR, RED JUNIPERUS VIRGINIANA [Suspect]
     Active Substance: JUNIPERUS VIRGINIANA POLLEN
     Route: 023

REACTIONS (3)
  - Throat irritation [Recovered/Resolved]
  - Rhinorrhoea [Recovered/Resolved]
  - Cough [Recovered/Resolved]

NARRATIVE: CASE EVENT DATE: 20160830
